FAERS Safety Report 18285296 (Version 1)
Quarter: 2020Q3

REPORT INFORMATION
  Report Type: Spontaneous
  Country: None (occurrence: US)
  Receive Date: 20200918
  Receipt Date: 20200918
  Transmission Date: 20201103
  Serious: No
  Sender: FDA-Public Use
  Company Number: TCL 20-097 370R

PATIENT
  Sex: Male

DRUGS (1)
  1. ACETAMINOPHEN 250 MG?ASPIRIN 250 MG?CAFFEINE 65 MG [Suspect]
     Active Substance: ACETAMINOPHEN\ASPIRIN\CAFFEINE
     Route: 048

REACTIONS (3)
  - Vomiting [Unknown]
  - Renal pain [None]
  - Urine analysis abnormal [None]

NARRATIVE: CASE EVENT DATE: 20200606
